FAERS Safety Report 13113415 (Version 1)
Quarter: 2017Q1

REPORT INFORMATION
  Report Type: Spontaneous
  Country: AR (occurrence: AR)
  Receive Date: 20170113
  Receipt Date: 20170113
  Transmission Date: 20170428
  Serious: Yes (Other)
  Sender: FDA-Public Use
  Company Number: AR-PFIZER INC-2017013259

PATIENT
  Sex: Female

DRUGS (3)
  1. ZELDOX [Suspect]
     Active Substance: ZIPRASIDONE
     Dosage: 20 MG, UNK
  2. ZELDOX [Suspect]
     Active Substance: ZIPRASIDONE
     Dosage: 80 MG, UNK
  3. ZELDOX [Suspect]
     Active Substance: ZIPRASIDONE
     Dosage: 40 MG, UNK

REACTIONS (2)
  - Drug ineffective [Unknown]
  - Suicidal ideation [Unknown]
